FAERS Safety Report 6353892-3 (Version None)
Quarter: 2009Q3

REPORT INFORMATION
  Report Type: 
  Country: None (occurrence: None)
  Receive Date: 20090912
  Receipt Date: 20090622
  Transmission Date: 20100115
  Serious: No
  Sender: FDA-Public Use
  Company Number: US-ABBOTT-08P-163-0479006-00

PATIENT
  Sex: Male

DRUGS (12)
  1. HUMIRA [Suspect]
     Indication: PSORIASIS
     Route: 058
     Dates: start: 20080901
  2. HUMIRA [Suspect]
     Indication: ARTHRITIS
  3. GENERIC TOPROL XL [Concomitant]
     Indication: CARDIAC DISORDER
     Route: 048
  4. FUROSEMIDE [Concomitant]
     Indication: DRUG USE FOR UNKNOWN INDICATION
     Route: 048
  5. ATORVASTATIN CALCIUM [Concomitant]
     Indication: DRUG USE FOR UNKNOWN INDICATION
     Dosage: AT NIGHT
     Route: 048
  6. URIC ACID [Concomitant]
     Indication: GOUT
     Route: 048
  7. ALLOPURINOL [Concomitant]
     Indication: GOUT
     Route: 048
  8. FLUOXETINE [Concomitant]
     Indication: DEPRESSION
     Route: 048
  9. UROXITROL [Concomitant]
     Indication: PROSTATIC DISORDER
     Route: 048
  10. MELOXICAM [Concomitant]
     Indication: PAIN
     Route: 048
  11. DARVOCET-N 100 [Concomitant]
     Indication: PAIN
     Route: 048
  12. I-CAP WITH LEUTINE [Concomitant]
     Indication: MACULAR DEGENERATION
     Route: 048

REACTIONS (4)
  - ACCIDENTAL NEEDLE STICK [None]
  - COUGH [None]
  - DYSPHONIA [None]
  - THROAT IRRITATION [None]
